FAERS Safety Report 8007099 (Version 3)
Quarter: 2012Q4

REPORT INFORMATION
  Report Type: 
  Country: US (occurrence: US)
  Receive Date: 20110623
  Receipt Date: 20121217
  Transmission Date: 20130627
  Serious: Yes (Life-Threatening, Hospitalization, Other)
  Sender: FDA-Public Use
  Company Number: US-ASTRAZENECA-2011SE36459

PATIENT
  Age: 37 Year
  Sex: Female
  Weight: 68 kg

DRUGS (7)
  1. SEROQUEL [Suspect]
     Indication: BIPOLAR DISORDER
     Route: 048
     Dates: start: 2001, end: 2009
  2. SEROQUEL [Suspect]
     Indication: BIPOLAR DISORDER
     Route: 048
     Dates: start: 2009
  3. SEROQUEL [Suspect]
     Indication: BIPOLAR DISORDER
     Route: 048
  4. TYLENOL [Suspect]
     Route: 065
  5. UNSPECIFIED INGREDIENT [Suspect]
     Route: 065
  6. XANAX [Concomitant]
  7. LITHIUM [Concomitant]

REACTIONS (25)
  - Suicide attempt [Unknown]
  - Suicidal ideation [Unknown]
  - Biliary colic [Unknown]
  - Nervous system disorder [Unknown]
  - Intentional self-injury [Unknown]
  - Vomiting [Unknown]
  - Grand mal convulsion [Unknown]
  - Blood iron decreased [Unknown]
  - Disinhibition [Unknown]
  - Delusion [Unknown]
  - Hallucination [Unknown]
  - Verbal abuse [Unknown]
  - Depression [Unknown]
  - Substance abuse [Unknown]
  - Therapy cessation [Unknown]
  - Sleep disorder [Unknown]
  - Abnormal behaviour [Unknown]
  - Adverse event [Unknown]
  - Schizophrenia [Unknown]
  - Bipolar I disorder [Unknown]
  - Panic attack [Unknown]
  - Asthenia [Unknown]
  - Increased appetite [Unknown]
  - Weight increased [Unknown]
  - Drug dose omission [Unknown]
